FAERS Safety Report 25181568 (Version 1)
Quarter: 2025Q2

REPORT INFORMATION
  Report Type: Spontaneous
  Country: US (occurrence: US)
  Receive Date: 20250410
  Receipt Date: 20250410
  Transmission Date: 20250717
  Serious: Yes (Hospitalization, Other)
  Sender: AUROBINDO
  Company Number: US-AUROBINDO-AUR-APL-2025-018426

PATIENT
  Age: 68 Year
  Sex: Female

DRUGS (4)
  1. DIPYRIDAMOLE [Suspect]
     Active Substance: DIPYRIDAMOLE
     Indication: Angina pectoris
     Route: 065
  2. DIPYRIDAMOLE [Suspect]
     Active Substance: DIPYRIDAMOLE
     Indication: Cardiac disorder
  3. RANOLAZINE [Suspect]
     Active Substance: RANOLAZINE
     Indication: Angina pectoris
     Route: 065
  4. RANOLAZINE [Suspect]
     Active Substance: RANOLAZINE
     Indication: Cardiac disorder

REACTIONS (2)
  - Angina pectoris [Unknown]
  - Drug ineffective [Unknown]
